FAERS Safety Report 5366706-5 (Version None)
Quarter: 2007Q2

REPORT INFORMATION
  Report Type: 
  Country: None (occurrence: None)
  Receive Date: 20070622
  Receipt Date: 20060519
  Transmission Date: 20071010
  Serious: No
  Sender: FDA-Public Use
  Company Number: US-ASTRAZENECA-2006UW09913

PATIENT
  Age: 74 Year
  Sex: Male
  Weight: 86.2 kg

DRUGS (2)
  1. RHINOCORT [Suspect]
     Indication: SEASONAL ALLERGY
     Route: 045
  2. ANTIHYPERTENSIVES [Concomitant]
     Indication: BLOOD PRESSURE

REACTIONS (3)
  - CHOKING SENSATION [None]
  - DIZZINESS [None]
  - HYPERTENSION [None]
